FAERS Safety Report 9775683 (Version 2)
Quarter: 2014Q1

REPORT INFORMATION
  Report Type: Report from Study
  Country: US (occurrence: US)
  Receive Date: 20131220
  Receipt Date: 20140110
  Transmission Date: 20141002
  Serious: Yes (Death, Other)
  Sender: FDA-Public Use
  Company Number: US-ACTELION-A-US2013-92495

PATIENT
  Age: 67 Year
  Sex: Female

DRUGS (5)
  1. VELETRI [Suspect]
     Indication: COR PULMONALE CHRONIC
     Dosage: 59 NG/KG, PER MIN
     Route: 041
     Dates: start: 20110901
  2. VELETRI [Suspect]
     Dosage: 31 NG/KG/MIN
     Route: 041
     Dates: start: 20100126
  3. TRACLEER [Suspect]
     Indication: COR PULMONALE CHRONIC
     Dosage: UNK
     Route: 048
  4. SILDENAFIL [Concomitant]
  5. COUMADIN [Concomitant]

REACTIONS (3)
  - Death [Fatal]
  - Terminal state [Unknown]
  - Dizziness [Unknown]
